FAERS Safety Report 15372870 (Version 1)
Quarter: 2018Q3

REPORT INFORMATION
  Report Type: Report from Study
  Country: None (occurrence: US)
  Receive Date: 20180912
  Receipt Date: 20180912
  Transmission Date: 20181010
  Serious: Yes (Other)
  Sender: FDA-Public Use
  Company Number: US-ABBVIE-18K-163-2391305-00

PATIENT
  Age: 56 Year
  Sex: Female

DRUGS (2)
  1. HUMIRA [Suspect]
     Active Substance: ADALIMUMAB
     Route: 058
     Dates: start: 2018
  2. HUMIRA [Suspect]
     Active Substance: ADALIMUMAB
     Indication: RHEUMATOID ARTHRITIS
     Route: 058
     Dates: start: 20180601, end: 201807

REACTIONS (14)
  - Oropharyngeal pain [Unknown]
  - Joint swelling [Recovering/Resolving]
  - Joint stiffness [Recovering/Resolving]
  - Blood glucose increased [Unknown]
  - Procedural pain [Unknown]
  - Discomfort [Unknown]
  - Anxiety [Unknown]
  - Spinal column stenosis [Unknown]
  - Arthralgia [Recovering/Resolving]
  - Pain [Recovering/Resolving]
  - Surgical skin tear [Unknown]
  - Back pain [Unknown]
  - Loss of personal independence in daily activities [Unknown]
  - Dysstasia [Unknown]

NARRATIVE: CASE EVENT DATE: 2018
